FAERS Safety Report 19067744 (Version 5)
Quarter: 2021Q2

REPORT INFORMATION
  Report Type: Spontaneous
  Country: CA (occurrence: CA)
  Receive Date: 20210329
  Receipt Date: 20210503
  Transmission Date: 20210717
  Serious: Yes (Hospitalization, Other)
  Sender: FDA-Public Use
  Company Number: CA-PFIZER INC-2021318780

PATIENT
  Age: 69 Year
  Sex: Female

DRUGS (4)
  1. CORTISONE [Concomitant]
     Active Substance: CORTISONE
     Dosage: 1 DF, UNK (DOSAGE NOT AVAILALBLE; DECREASING DOSES)
     Route: 065
     Dates: start: 20201125
  2. XELJANZ [Suspect]
     Active Substance: TOFACITINIB CITRATE
     Indication: RHEUMATOID ARTHRITIS
     Dosage: 5 MG, 2X/DAY
     Route: 048
     Dates: start: 20201211, end: 20210405
  3. METHOTREXATE. [Concomitant]
     Active Substance: METHOTREXATE
     Dosage: 17.5 MG, WEEKLY (17500 MICROGRAM)
     Route: 048
     Dates: start: 20200929
  4. PLAQUENIL [Concomitant]
     Active Substance: HYDROXYCHLOROQUINE SULFATE
     Dosage: UNK, 1X/DAY (200, DOSAGE UNIT NOT AVAILABLE)
     Route: 065

REACTIONS (1)
  - Coronary artery occlusion [Unknown]
